FAERS Safety Report 7739676-X (Version None)
Quarter: 2011Q3

REPORT INFORMATION
  Report Type: 
  Country: None (occurrence: None)
  Receive Date: 20110909
  Receipt Date: 20110905
  Transmission Date: 20111222
  Serious: Yes (Death)
  Sender: FDA-Public Use
  Company Number: GR-PFIZER INC-2011206899

PATIENT
  Age: 58 Year
  Sex: Female

DRUGS (2)
  1. PIPERACILLIN AND TAZOBACTAM [Suspect]
     Indication: PNEUMONIA
     Dosage: 4.5 G, 3X/DAY
     Route: 042
  2. PIPERACILLIN AND TAZOBACTAM [Suspect]
     Indication: SEPSIS

REACTIONS (1)
  - DRUG INEFFECTIVE [None]
